FAERS Safety Report 8625373-5 (Version None)
Quarter: 2012Q3

REPORT INFORMATION
  Report Type: 
  Country: None (occurrence: None)
  Receive Date: 20120827
  Receipt Date: 20120822
  Transmission Date: 20120928
  Serious: Yes (Death, Life-Threatening, Hospitalization, Other)
  Sender: FDA-Public Use
  Company Number: FR-PFIZER INC-2012205530

PATIENT
  Age: 61 Year
  Sex: Female

DRUGS (13)
  1. ASPIRIN [Suspect]
     Dosage: 75 MG, 1X/DAY
     Route: 048
  2. RAMIPRIL [Suspect]
     Dosage: 10 MG, 1X/DAY
     Route: 048
     Dates: end: 20120726
  3. DURAGESIC-100 [Suspect]
     Dosage: 50 MG, 1X/DAY
     Route: 062
     Dates: end: 20120726
  4. CYMBALTA [Suspect]
     Dosage: 60 MG, 1X/DAY
     Route: 048
     Dates: end: 20120726
  5. PLAVIX [Suspect]
     Dosage: 75 MG, 1X/DAY
     Route: 048
  6. ZOMETA [Suspect]
     Indication: HYPERCALCAEMIA
     Dosage: 4 MG, SINGLE
     Route: 042
     Dates: start: 20120719, end: 20120719
  7. NEXIUM [Suspect]
     Dosage: 20 MG, 1X/DAY
     Route: 048
  8. LERCANIDIPINE [Suspect]
     Dosage: 10 MG, 1X/DAY
     Route: 048
     Dates: end: 20120726
  9. ATORVASTATIN [Suspect]
     Dosage: 10 MG, 1X/DAY
     Route: 048
  10. ACETAMINOPHEN [Suspect]
     Dosage: 1 G, 1X/DAY
     Route: 048
     Dates: end: 20120726
  11. BISOPROLOL FUMARATE [Suspect]
     Dosage: 3.75 MG, 1X/DAY
     Route: 048
     Dates: end: 20120727
  12. LYRICA [Suspect]
     Dosage: 75 MG, 2X/DAY
     Route: 048
     Dates: end: 20120726
  13. NITROGLYCERIN [Suspect]
     Dosage: 5 MG, 1X/DAY
     Route: 062
     Dates: end: 20120726

REACTIONS (6)
  - RENAL FAILURE ACUTE [None]
  - CONFUSIONAL STATE [None]
  - ACUTE PULMONARY OEDEMA [None]
  - METASTATIC PAIN [None]
  - HYPERCALCAEMIA [None]
  - AGITATION [None]
